FAERS Safety Report 8232687-X (Version None)
Quarter: 2012Q1

REPORT INFORMATION
  Report Type: 
  Country: None (occurrence: None)
  Receive Date: 20120323
  Receipt Date: 20120319
  Transmission Date: 20120608
  Serious: Yes (Other)
  Sender: FDA-Public Use
  Company Number: PHEH2011US06381

PATIENT
  Sex: Female
  Weight: 37.2 kg

DRUGS (6)
  1. AFINITOR [Suspect]
     Dosage: 5 MG, QD
     Route: 048
     Dates: start: 20111012
  2. CLONAZEPAM [Concomitant]
     Dosage: 1 MG, PRN
     Route: 048
  3. ZOFRAN [Concomitant]
  4. CLONAZEPAM [Concomitant]
     Indication: CONVULSION
     Dosage: 0.5 MG, QD
     Route: 048
  5. CLONAZEPAM [Concomitant]
     Dosage: 2 MG, QHS
     Route: 048
  6. AFINITOR [Suspect]
     Indication: ASTROCYTOMA, LOW GRADE
     Dosage: 2.5 MG, QD
     Route: 048
     Dates: start: 20110916, end: 20111011

REACTIONS (3)
  - ABNORMAL BEHAVIOUR [None]
  - DRUG LEVEL BELOW THERAPEUTIC [None]
  - CONVULSION [None]
